FAERS Safety Report 5446217-9 (Version None)
Quarter: 2007Q3

REPORT INFORMATION
  Report Type: 
  Country: None (occurrence: None)
  Receive Date: 20070731
  Receipt Date: 20070124
  Transmission Date: 20080115
  Serious: Yes (Other)
  Sender: FDA-Public Use
  Company Number: US-2007-002367

PATIENT
  Sex: Female

DRUGS (1)
  1. MAGNEVIST INJECTION(GADOPENTETATE DIMEGLUMINE) INJECTION [Suspect]
     Dosage: 16-20 ML, 1 DOSE,
     Dates: start: 20060822, end: 20060822

REACTIONS (7)
  - DYSPNOEA [None]
  - ERYTHEMA [None]
  - EYE SWELLING [None]
  - FEAR [None]
  - PRURITUS [None]
  - SNEEZING [None]
  - SWELLING FACE [None]
